FAERS Safety Report 6243240-1 (Version None)
Quarter: 2009Q2

REPORT INFORMATION
  Report Type: 
  Country: None (occurrence: None)
  Receive Date: 20090622
  Receipt Date: 20090622
  Transmission Date: 20091009
  Serious: Yes (Life-Threatening, Hospitalization)
  Sender: FDA-Public Use
  Company Number: None

PATIENT
  Age: 20 Year
  Sex: Female
  Weight: 44.4525 kg

DRUGS (2)
  1. LABETALOL HCL [Suspect]
     Indication: HYPERTENSIVE CRISIS
     Dosage: 20 MG PRN IV BOLUS 4 DOSES
     Route: 040
  2. LABETALOL HCL [Suspect]
     Indication: HYPERTENSIVE CRISIS
     Dosage: 2-3 MG PER MINUTE IV DRIP
     Route: 041

REACTIONS (2)
  - DIALYSIS [None]
  - HYPERKALAEMIA [None]
